FAERS Safety Report 11308772 (Version 1)
Quarter: 2015Q3

REPORT INFORMATION
  Report Type: Spontaneous
  Country: FI (occurrence: FI)
  Receive Date: 20150724
  Receipt Date: 20150724
  Transmission Date: 20151125
  Serious: Yes (Disabling)
  Sender: FDA-Public Use
  Company Number: FI-TEVA-579330ISR

PATIENT
  Age: 28 Year
  Sex: Female

DRUGS (1)
  1. CIPROFLOXACIN RATIOPHARM 500 MG [Suspect]
     Active Substance: CIPROFLOXACIN
     Indication: NEPHRITIS
     Dosage: 1500 MILLIGRAM DAILY; ONE TABLET 3 TIMES A DAY
     Route: 048
     Dates: start: 20150630, end: 20150703

REACTIONS (8)
  - Myalgia [Recovered/Resolved]
  - Muscular weakness [Recovered/Resolved]
  - Muscular weakness [Recovered/Resolved]
  - Mental impairment [Recovered/Resolved]
  - Paraesthesia [Recovering/Resolving]
  - Constipation [Recovered/Resolved]
  - Headache [Recovered/Resolved]
  - Rash [Recovered/Resolved]

NARRATIVE: CASE EVENT DATE: 20150701
